FAERS Safety Report 7737748-7 (Version None)
Quarter: 2011Q3

REPORT INFORMATION
  Report Type: 
  Country: None (occurrence: None)
  Receive Date: 20110908
  Receipt Date: 20110901
  Transmission Date: 20111222
  Serious: Yes (Other)
  Sender: FDA-Public Use
  Company Number: DE-EISAI INC-E2080-00400-SPO-DE

PATIENT
  Sex: Male

DRUGS (4)
  1. INOVELON [Suspect]
     Indication: EPILEPSY
     Route: 048
  2. FELBAMATE [Interacting]
     Indication: EPILEPSY
     Dosage: 1200 MG UNKNOWN
     Route: 048
  3. VALPROATE SODIUM [Concomitant]
  4. INOVELON [Interacting]
     Dosage: DOSE REDUCED UNKNOWN
     Route: 048

REACTIONS (2)
  - DRUG INTERACTION [None]
  - CONVULSION [None]
